FAERS Safety Report 4502651-2 (Version None)
Quarter: 2004Q3

REPORT INFORMATION
  Report Type: 
  Country: None (occurrence: None)
  Receive Date: 20040928
  Receipt Date: 20040604
  Transmission Date: 20050211
  Serious: No
  Sender: FDA-Public Use
  Company Number: 04P-163-0262784-00

PATIENT
  Age: 34 Year
  Sex: Female
  Weight: 90.7194 kg

DRUGS (17)
  1. HUMIRA [Suspect]
     Indication: RHEUMATOID ARTHRITIS
     Dosage: 40 MG, 1 IN 2 WK, SUBCUTANEOUS
     Route: 058
     Dates: start: 20040510, end: 20040524
  2. MECLIZINE [Concomitant]
  3. OMEPRAZOLE [Concomitant]
  4. MODAFINIL [Concomitant]
  5. HYDROCHLOROQUINE PHOSPHATE [Concomitant]
  6. FEXOFENADINE HYDROCHLORIDE [Concomitant]
  7. PROPACET 100 [Concomitant]
  8. RIZATRIPTAN BENZOATE [Concomitant]
  9. PROMETHAZINE [Concomitant]
  10. ROFECOXIB [Concomitant]
  11. NATATAB [Concomitant]
  12. VERAPAMIL [Concomitant]
  13. CLONAZEPAM [Concomitant]
  14. HYDROXYZINE EMBONATE [Concomitant]
  15. GLUCOPHAGE [Concomitant]
  16. CARISOPRODOL [Concomitant]
  17. ACETYLSALICYLIC ACID SRT [Concomitant]

REACTIONS (3)
  - INJECTION SITE HAEMORRHAGE [None]
  - LYMPHADENOPATHY [None]
  - RASH [None]
